FAERS Safety Report 5037768-X (Version None)
Quarter: 2006Q2

REPORT INFORMATION
  Report Type: 
  Country: None (occurrence: None)
  Receive Date: 20060626
  Receipt Date: 20060619
  Transmission Date: 20061013
  Serious: Yes (Other)
  Sender: FDA-Public Use
  Company Number: 2006-04-0249

PATIENT
  Age: 73 Year
  Sex: Male
  Weight: 66 kg

DRUGS (8)
  1. TEMODAL [Suspect]
     Indication: METASTASES TO CENTRAL NERVOUS SYSTEM
     Dosage: 130 MG QD ORAL
     Route: 048
     Dates: start: 20060316, end: 20060320
  2. RADIATION THERAPY [Concomitant]
  3. AUGMENTIN '125' [Concomitant]
  4. INIPOMP (PANTOPRAZOLE) [Concomitant]
  5. DUPHALAC [Concomitant]
  6. SOLUPRED [Concomitant]
  7. GLIMEPIRIDE [Concomitant]
  8. FRAXODI [Concomitant]

REACTIONS (1)
  - URTICARIA GENERALISED [None]
